FAERS Safety Report 14127826 (Version 2)
Quarter: 2017Q4

REPORT INFORMATION
  Report Type: Spontaneous
  Country: US (occurrence: US)
  Receive Date: 20171026
  Receipt Date: 20171102
  Transmission Date: 20180321
  Serious: No
  Sender: FDA-Public Use
  Company Number: US-PFIZER INC-2017455888

PATIENT
  Age: 36 Year
  Sex: Male

DRUGS (3)
  1. LYRICA [Suspect]
     Active Substance: PREGABALIN
     Indication: NEURALGIA
     Dosage: 75 MG, UNK
  2. LYRICA [Suspect]
     Active Substance: PREGABALIN
     Dosage: 300 MG, TWICE DAILY
     Route: 048
  3. OXYCODONE [Concomitant]
     Active Substance: OXYCODONE
     Dosage: 15 MG, TWICE DAILY
     Route: 048

REACTIONS (5)
  - Therapeutic response unexpected [Unknown]
  - Irritability [Unknown]
  - Agitation [Not Recovered/Not Resolved]
  - Blood pressure normal [Unknown]
  - Malaise [Unknown]
